FAERS Safety Report 26095529 (Version 1)
Quarter: 2025Q4

REPORT INFORMATION
  Report Type: Spontaneous
  Country: CN (occurrence: CN)
  Receive Date: 20251127
  Receipt Date: 20251127
  Transmission Date: 20260117
  Serious: Yes (Other)
  Sender: JOHNSON AND JOHNSON
  Company Number: CN-JNJFOC-20251167963

PATIENT
  Age: 80 Year
  Sex: Female

DRUGS (1)
  1. DARATUMUMAB [Suspect]
     Active Substance: DARATUMUMAB
     Indication: Plasma cell myeloma
     Route: 058
     Dates: start: 20251111, end: 20251111

REACTIONS (3)
  - Hyperpyrexia [Recovering/Resolving]
  - Chills [Recovering/Resolving]
  - Injection related reaction [Recovering/Resolving]

NARRATIVE: CASE EVENT DATE: 20251111
